FAERS Safety Report 18025601 (Version 2)
Quarter: 2024Q2

REPORT INFORMATION
  Report Type: Other
  Country: US (occurrence: None)
  Receive Date: 20200715
  Receipt Date: 20240511
  Transmission Date: 20240716
  Serious: Yes (Hospitalization, Other)
  Sender: FDA-Public Use
  Company Number: US-ROCHE-1356932

PATIENT
  Age: 56 Year
  Sex: Female
  Weight: 53.572 kg

DRUGS (22)
  1. CELLCEPT [Suspect]
     Active Substance: MYCOPHENOLATE MOFETIL
     Indication: Heart transplant
     Dosage: 4 CAPSULES BID
     Route: 048
  2. CELLCEPT [Suspect]
     Active Substance: MYCOPHENOLATE MOFETIL
     Indication: Heart transplant
     Route: 048
  3. PREVACID [Suspect]
     Active Substance: LANSOPRAZOLE
     Indication: Product used for unknown indication
     Route: 048
  4. PREDNISONE [Concomitant]
     Active Substance: PREDNISONE
  5. ATENOLOL [Concomitant]
     Active Substance: ATENOLOL
     Route: 048
  6. ARIMIDEX [Concomitant]
     Active Substance: ANASTROZOLE
     Route: 048
  7. COZAAR [Concomitant]
     Active Substance: LOSARTAN POTASSIUM
     Route: 048
  8. FUROSEMIDE [Concomitant]
     Active Substance: FUROSEMIDE
     Route: 048
  9. ALPRAZOLAM [Concomitant]
     Active Substance: ALPRAZOLAM
     Dosage: 1 Q PM
     Route: 048
  10. DOCUSATE SODIUM [Concomitant]
     Active Substance: DOCUSATE SODIUM
     Route: 048
  11. ASPIRIN [Concomitant]
     Active Substance: ASPIRIN
     Route: 048
  12. VITAMIN B6 [Concomitant]
     Active Substance: PYRIDOXINE HYDROCHLORIDE
  13. PROCRIT [Concomitant]
     Active Substance: ERYTHROPOIETIN
     Dosage: 40 UNITS
  14. GENGRAF [Concomitant]
     Active Substance: CYCLOSPORINE
     Dosage: TAKE 100MG IN THE AM AND 75MG IN THE PM
     Route: 048
     Dates: start: 20200514
  15. GENGRAF [Concomitant]
     Active Substance: CYCLOSPORINE
     Dosage: IN THE EVENING
     Route: 048
  16. CYTOXAN [Concomitant]
     Active Substance: CYCLOPHOSPHAMIDE
  17. LOSARTAN [Concomitant]
     Active Substance: LOSARTAN
  18. LANSOPRAZOLE [Concomitant]
     Active Substance: LANSOPRAZOLE
  19. FLUTICASONE [Concomitant]
     Active Substance: FLUTICASONE
  20. CARVEDILOL [Concomitant]
     Active Substance: CARVEDILOL
  21. PROCRIT [Concomitant]
     Active Substance: ERYTHROPOIETIN
  22. CYANOCOBALAMIN [Concomitant]
     Active Substance: CYANOCOBALAMIN

REACTIONS (17)
  - Hepatic cirrhosis [Unknown]
  - Ascites [Unknown]
  - Atrial fibrillation [Unknown]
  - Tricuspid valve incompetence [Unknown]
  - Gastrooesophageal reflux disease [Unknown]
  - Weight increased [Unknown]
  - Constipation [Unknown]
  - Anaemia [Unknown]
  - Fatigue [Unknown]
  - Vascular anastomosis [Unknown]
  - Palpitations [Unknown]
  - Peripheral swelling [Unknown]
  - Leukopenia [Unknown]
  - Influenza [Recovered/Resolved]
  - Ill-defined disorder [Unknown]
  - Cardiac murmur [Unknown]
  - Non-pitting oedema [Unknown]

NARRATIVE: CASE EVENT DATE: 20150427
